FAERS Safety Report 6466945-6 (Version None)
Quarter: 2009Q4

REPORT INFORMATION
  Report Type: 
  Country: None (occurrence: None)
  Receive Date: 20091202
  Receipt Date: 20091119
  Transmission Date: 20100525
  Serious: Yes (Life-Threatening, Hospitalization)
  Sender: FDA-Public Use
  Company Number: NL-ELI_LILLY_AND_COMPANY-NL200907006090

PATIENT
  Sex: Male
  Weight: 43 kg

DRUGS (4)
  1. STRATTERA [Suspect]
     Indication: ATTENTION DEFICIT/HYPERACTIVITY DISORDER
     Dosage: 40 MG, DAILY (1/D)
     Dates: start: 20051006
  2. STRATTERA [Suspect]
     Dosage: 40 MG, DAILY (1/D)
     Dates: end: 20071022
  3. MELATONIN [Concomitant]
     Dosage: 1 D/F, UNKNOWN
     Route: 065
  4. HEPARIN LEO [Concomitant]
     Dosage: 1 D/F, UNKNOWN (5.000IE/ML FLACON 5ML)
     Route: 065

REACTIONS (3)
  - ARTERIAL DISORDER [None]
  - CEREBRAL ISCHAEMIA [None]
  - CEREBROVASCULAR ACCIDENT [None]
